FAERS Safety Report 14313706 (Version 2)
Quarter: 2018Q1

REPORT INFORMATION
  Report Type: Spontaneous
  Country: PT (occurrence: PT)
  Receive Date: 20171221
  Receipt Date: 20180208
  Transmission Date: 20180509
  Serious: Yes (Other)
  Sender: FDA-Public Use
  Company Number: PT-PFIZER INC-2017540854

PATIENT
  Age: 10 Year
  Sex: Male

DRUGS (1)
  1. INOTUZUMAB OZOGAMICIN [Suspect]
     Active Substance: INOTUZUMAB OZOGAMICIN
     Dosage: UNK, CYCLIC (EACH CYCLE WITH 3 INTAKES, ON D1, D8 AND D15)
     Route: 042
     Dates: start: 2017, end: 2017

REACTIONS (3)
  - Neoplasm progression [Unknown]
  - Cytopenia [Unknown]
  - Periorbital cellulitis [Unknown]

NARRATIVE: CASE EVENT DATE: 2017
